FAERS Safety Report 6393321-7 (Version None)
Quarter: 2009Q4

REPORT INFORMATION
  Report Type: 
  Country: None (occurrence: None)
  Receive Date: 20091008
  Receipt Date: 20090925
  Transmission Date: 20100525
  Serious: Yes (Disabling, Other)
  Sender: FDA-Public Use
  Company Number: PHHY2009AU34320

PATIENT
  Sex: Female
  Weight: 32 kg

DRUGS (4)
  1. ACLASTA [Suspect]
     Indication: OSTEOPOROSIS
     Dosage: YEARLY
     Route: 042
     Dates: start: 20090728
  2. PREDNISONE TAB [Concomitant]
     Indication: MYALGIA
     Dosage: 6 PER DAY DURING FLARE UP
     Route: 048
  3. PREDNISONE TAB [Concomitant]
     Dosage: 2 PER DAY
     Route: 048
  4. ROCALTROL [Concomitant]
     Indication: MYALGIA
     Route: 048

REACTIONS (15)
  - ASTHENIA [None]
  - BACK PAIN [None]
  - BONE PAIN [None]
  - CHILLS [None]
  - DEPRESSED MOOD [None]
  - DISTURBANCE IN ATTENTION [None]
  - FATIGUE [None]
  - IMPAIRED DRIVING ABILITY [None]
  - IMPAIRED WORK ABILITY [None]
  - JOINT STIFFNESS [None]
  - MUSCULOSKELETAL PAIN [None]
  - MYALGIA [None]
  - PAIN [None]
  - PALPITATIONS [None]
  - QUALITY OF LIFE DECREASED [None]
